FAERS Safety Report 7758596-8 (Version None)
Quarter: 2011Q3

REPORT INFORMATION
  Report Type: 
  Country: None (occurrence: None)
  Receive Date: 20110919
  Receipt Date: 20110906
  Transmission Date: 20111222
  Serious: Yes (Other)
  Sender: FDA-Public Use
  Company Number: US-ELI_LILLY_AND_COMPANY-US201011004839

PATIENT
  Sex: Male

DRUGS (7)
  1. UROXATRAL [Concomitant]
  2. VOLTAREN                                /SCH/ [Concomitant]
  3. CYMBALTA [Suspect]
     Dosage: 60 MG, DAILY (1/D)
     Dates: start: 20100101
  4. CYMBALTA [Suspect]
     Dosage: 30 MG, QD
     Dates: start: 20101119
  5. CYMBALTA [Suspect]
     Indication: BACK PAIN
     Dosage: 30 MG, QD
     Dates: start: 20091201
  6. ARTHROTEC [Concomitant]
  7. OXYCODONE HCL [Concomitant]

REACTIONS (5)
  - BLOOD ALKALINE PHOSPHATASE INCREASED [None]
  - ABNORMAL DREAMS [None]
  - BLOOD BILIRUBIN INCREASED [None]
  - ASPARTATE AMINOTRANSFERASE INCREASED [None]
  - ALANINE AMINOTRANSFERASE INCREASED [None]
